FAERS Safety Report 9589339 (Version 2)
Quarter: 2013Q4

REPORT INFORMATION
  Report Type: Spontaneous
  Country: US (occurrence: US)
  Receive Date: 20131003
  Receipt Date: 20131003
  Transmission Date: 20140711
  Serious: No
  Sender: FDA-Public Use
  Company Number: US-AMGEN-USASP2012068194

PATIENT
  Age: 40 Year
  Sex: Male
  Weight: 102.4 kg

DRUGS (10)
  1. ENBREL [Suspect]
     Indication: PSORIATIC ARTHROPATHY
     Dosage: 50 MG, QWK
     Route: 058
     Dates: start: 20120914
  2. ENBREL [Suspect]
     Indication: PSORIASIS
  3. LEVOTHYROXIN [Concomitant]
     Dosage: 100 MUG, UNK
     Route: 048
  4. WELLBUTRIN [Concomitant]
     Dosage: 100 MG, UNK
     Route: 048
  5. CLONAZEPAM [Concomitant]
     Dosage: 0.5 MG, UNK
     Route: 048
  6. LUNESTA [Concomitant]
     Dosage: 1 MG, UNK
     Route: 048
  7. ALEVE [Concomitant]
     Dosage: 220 MG, UNK
     Route: 048
  8. MELATONIN [Concomitant]
     Dosage: 1 MG, UNK
     Route: 048
  9. LISINOPRIL [Concomitant]
     Indication: HYPERTENSION
     Dosage: UNK
     Route: 048
     Dates: end: 20120928
  10. DIOVAN [Concomitant]
     Indication: HYPERTENSION
     Dosage: UNK
     Route: 048

REACTIONS (3)
  - Rash papular [Unknown]
  - Blister [Unknown]
  - Pain of skin [Unknown]
